FAERS Safety Report 6772248-2 (Version None)
Quarter: 2010Q2

REPORT INFORMATION
  Report Type: 
  Country: None (occurrence: None)
  Receive Date: 20100616
  Receipt Date: 20090210
  Transmission Date: 20101027
  Serious: No
  Sender: FDA-Public Use
  Company Number: US-ASTRAZENECA-2009UW00327

PATIENT
  Age: 61 Year
  Sex: Female
  Weight: 122.5 kg

DRUGS (8)
  1. PULMICORT FLEXHALER [Suspect]
     Indication: ASTHMA
     Dosage: 180 MCG 120 INHALATIONS
     Route: 055
     Dates: start: 20080301
  2. METFORMIN [Concomitant]
  3. CORICIDIN [Concomitant]
  4. GLIMPERIDE [Concomitant]
  5. DITROPAN [Concomitant]
  6. ATACAND [Concomitant]
  7. HCTZ [Concomitant]
  8. ASPIRIN [Concomitant]

REACTIONS (2)
  - COUGH [None]
  - ILL-DEFINED DISORDER [None]
